FAERS Safety Report 10357555 (Version 1)
Quarter: 2014Q3

REPORT INFORMATION
  Report Type: Spontaneous
  Country: IT (occurrence: IT)
  Receive Date: 20140801
  Receipt Date: 20140801
  Transmission Date: 20150326
  Serious: Yes (Hospitalization)
  Sender: FDA-Public Use
  Company Number: IT-TEVA-497685ISR

PATIENT
  Age: 65 Year
  Sex: Male

DRUGS (8)
  1. SOLDESAM 8MG/2ML [Concomitant]
  2. IRINOTECAN KABI [Suspect]
     Active Substance: IRINOTECAN
     Indication: COLON NEOPLASM
     Dosage: 200 MILLIGRAM DAILY;
     Route: 041
     Dates: start: 20140505, end: 20140709
  3. LEVOFOLENE 175 MG [Concomitant]
     Dosage: 340 MILLIGRAM DAILY;
  4. ERBITUX [Suspect]
     Active Substance: CETUXIMAB
     Indication: COLON NEOPLASM
     Dosage: 400 MILLIGRAM DAILY;
     Route: 041
     Dates: start: 20140505, end: 20140709
  5. FLUOROURACILE TEVA [Suspect]
     Active Substance: FLUOROURACIL
     Indication: COLON NEOPLASM
     Dosage: 1300 MILLIGRAM DAILY;
     Route: 040
     Dates: start: 20140505, end: 20140709
  6. FLUOROURACILE TEVA [Suspect]
     Active Substance: FLUOROURACIL
     Dosage: 2000 MILLIGRAM DAILY;
     Route: 041
     Dates: start: 20140505, end: 20140709
  7. ZOFRAN 8 MG [Concomitant]
  8. BLOPRESS 8 MG [Concomitant]

REACTIONS (3)
  - Renal failure acute [Recovering/Resolving]
  - Vomiting [Recovering/Resolving]
  - Diarrhoea [Recovering/Resolving]

NARRATIVE: CASE EVENT DATE: 20140718
